FAERS Safety Report 12473507 (Version 1)
Quarter: 2016Q2

REPORT INFORMATION
  Report Type: Spontaneous
  Country: JP (occurrence: JP)
  Receive Date: 20160616
  Receipt Date: 20160616
  Transmission Date: 20160815
  Serious: Yes (Hospitalization, Other)
  Sender: FDA-Public Use
  Company Number: JP-GILEAD-2016-0218035

PATIENT
  Sex: Male

DRUGS (6)
  1. BIASPIRIN [Concomitant]
  2. AZILVA [Concomitant]
     Active Substance: AZILSARTAN KAMEDOXOMIL
  3. HARVONI [Suspect]
     Active Substance: LEDIPASVIR\SOFOSBUVIR
     Indication: PRODUCT USED FOR UNKNOWN INDICATION
     Route: 065
  4. PLETAL [Concomitant]
     Active Substance: CILOSTAZOL
  5. NESINA [Concomitant]
     Active Substance: ALOGLIPTIN BENZOATE
  6. NORVASC [Concomitant]
     Active Substance: AMLODIPINE BESYLATE

REACTIONS (1)
  - Cerebral infarction [Unknown]
